FAERS Safety Report 6275614-7 (Version None)
Quarter: 2009Q3

REPORT INFORMATION
  Report Type: 
  Country: None (occurrence: None)
  Receive Date: 20090721
  Receipt Date: 20090709
  Transmission Date: 20100115
  Serious: Yes (Death)
  Sender: FDA-Public Use
  Company Number: HK-PFIZER INC-2009228743

PATIENT
  Age: 78 Year

DRUGS (14)
  1. BLINDED *NO SUBJECT DRUG [Suspect]
  2. BLINDED *PLACEBO [Suspect]
  3. BLINDED EPLERENONE [Suspect]
  4. RAMIPRIL [Concomitant]
     Dosage: UNK
     Route: 048
     Dates: start: 20071115
  5. POTASSIUM CHLORIDE [Concomitant]
     Dosage: UNK
     Route: 048
     Dates: start: 20071205
  6. ACETYLSALICYLIC ACID [Concomitant]
     Dosage: UNK
     Route: 048
     Dates: start: 20071113
  7. FRUSEMIDE [Concomitant]
     Dosage: UNK
     Route: 048
     Dates: start: 20071205
  8. BISOPROLOL [Concomitant]
     Dosage: UNK
     Route: 048
     Dates: start: 20071203
  9. ATORVASTATIN [Concomitant]
     Dosage: UNK
     Route: 048
     Dates: start: 20080109
  10. RABEPRAZOLE SODIUM [Concomitant]
     Dosage: UNK
     Route: 048
     Dates: start: 20071203
  11. DIPYRIDAMOLE [Concomitant]
     Dosage: UNK
     Route: 048
     Dates: start: 20080102
  12. DONEPEZIL HYDROCHLORIDE [Concomitant]
     Dosage: UNK
     Route: 050
     Dates: start: 20090408
  13. CYANOCOBALAMIN [Concomitant]
     Dosage: UNK
     Route: 051
     Dates: start: 20090408
  14. GLYCERYL TRINITRATE [Concomitant]
     Dosage: UNK
     Route: 060
     Dates: start: 20071203

REACTIONS (1)
  - SUDDEN DEATH [None]
